FAERS Safety Report 25736901 (Version 1)
Quarter: 2025Q3

REPORT INFORMATION
  Report Type: Spontaneous
  Country: US (occurrence: None)
  Receive Date: 20250828
  Receipt Date: 20250828
  Transmission Date: 20251020
  Serious: No
  Sender: FDA-CTU
  Company Number: None

PATIENT
  Age: 82 Year
  Sex: Male
  Weight: 77.4 kg

DRUGS (2)
  1. GAMMAGARD [Suspect]
     Active Substance: HUMAN IMMUNOGLOBULIN G
     Indication: Myasthenia gravis
     Dosage: FREQUENCY : MONTHLY;?
     Route: 041
  2. GAMMAGARD LIQUID [Concomitant]
     Active Substance: HUMAN IMMUNOGLOBULIN G
     Dates: start: 20250827, end: 20250828

REACTIONS (3)
  - Blood pressure increased [None]
  - Headache [None]
  - No reaction on previous exposure to drug [None]

NARRATIVE: CASE EVENT DATE: 20250827
